FAERS Safety Report 9684082 (Version 2)
Quarter: 2013Q4

REPORT INFORMATION
  Report Type: Spontaneous
  Country: US (occurrence: US)
  Receive Date: 20131112
  Receipt Date: 20131112
  Transmission Date: 20140711
  Serious: Yes (Hospitalization)
  Sender: FDA-Public Use
  Company Number: US-ACTELION-A-NJ2008-20670

PATIENT
  Age: 4 Year
  Sex: Female

DRUGS (11)
  1. TRACLEER [Suspect]
     Indication: PULMONARY HYPERTENSION
     Dosage: 1.6 MG/KG, Q12HRS
     Route: 048
  2. SILDENAFIL [Concomitant]
  3. LASIX [Concomitant]
  4. ALBUTEROL [Concomitant]
  5. PULMICORT [Concomitant]
  6. XOPENEX [Concomitant]
  7. ATROVENT [Concomitant]
  8. TRILEPTAL [Concomitant]
  9. ZYRTEC [Concomitant]
  10. REGLAN [Concomitant]
  11. ZANTAC [Concomitant]

REACTIONS (8)
  - Liver function test abnormal [Recovered/Resolved]
  - Respiratory tract infection [Unknown]
  - Aspartate aminotransferase increased [Recovered/Resolved]
  - Alanine aminotransferase increased [Recovered/Resolved]
  - Gamma-glutamyltransferase increased [Unknown]
  - Oxygen saturation decreased [Unknown]
  - Loss of consciousness [Unknown]
  - Eczema [Unknown]
